FAERS Safety Report 9983707 (Version 1)
Quarter: 2014Q1

REPORT INFORMATION
  Report Type: Spontaneous
  Country: ES (occurrence: ES)
  Receive Date: 20140307
  Receipt Date: 20140307
  Transmission Date: 20141002
  Serious: Yes (Hospitalization)
  Sender: FDA-Public Use
  Company Number: ES-AMGEN-ESPSP2014015497

PATIENT
  Age: 78 Year
  Sex: Male
  Weight: 76 kg

DRUGS (2)
  1. VECTIBIX [Suspect]
     Indication: COLON CANCER
     Dosage: 500 MG, UNK
     Route: 042
     Dates: start: 20130626, end: 20130626
  2. OXALIPLATINO ACCORD [Suspect]
     Indication: COLON CANCER
     Dosage: 170 MG, QD
     Route: 042
     Dates: start: 20130626, end: 20130626

REACTIONS (1)
  - Acute interstitial pneumonitis [Recovering/Resolving]
